FAERS Safety Report 7199546-5 (Version None)
Quarter: 2010Q4

REPORT INFORMATION
  Report Type: 
  Country: None (occurrence: None)
  Receive Date: 20101228
  Receipt Date: 20101217
  Transmission Date: 20110411
  Serious: Yes (Hospitalization)
  Sender: FDA-Public Use
  Company Number: PHHY2010RU67545

PATIENT
  Age: 21 Year
  Sex: Male

DRUGS (11)
  1. MYFORTIC [Suspect]
     Indication: LUPUS NEPHRITIS
     Dosage: 1 TABLET (360 MG), QD
     Dates: start: 20100901
  2. MYFORTIC [Suspect]
     Dosage: 2 TABLET A DAY
  3. METYPRED [Concomitant]
     Dosage: 3 TABLET DAILY
     Dates: start: 20090701
  4. PRESTARIUM [Concomitant]
     Dosage: UNK
  5. INDAP [Concomitant]
     Dosage: UNK
  6. LOKREN [Concomitant]
     Dosage: UNK
  7. SULODEXIDE [Concomitant]
     Dosage: PERIODICALLY
  8. CONCOR [Concomitant]
     Dosage: 5 MG
  9. AMLODIPINE [Concomitant]
     Dosage: 5 MG
  10. INDAPAMID RETARD [Concomitant]
     Dosage: 1.5MG, IN THE MORNING
  11. MABTHERA [Concomitant]
     Dosage: 500MG, WEEKLY FOURFOLD

REACTIONS (5)
  - HAEMATURIA [None]
  - NEPHRITIS [None]
  - PROTEINURIA [None]
  - URINARY CASTS [None]
  - URINE ANALYSIS ABNORMAL [None]
